FAERS Safety Report 23651323 (Version 2)
Quarter: 2024Q2

REPORT INFORMATION
  Report Type: Spontaneous
  Country: DE (occurrence: DE)
  Receive Date: 20240320
  Receipt Date: 20240407
  Transmission Date: 20240715
  Serious: Yes (Other)
  Sender: FDA-Public Use
  Company Number: DE-ABBVIE-5672762

PATIENT
  Age: 12 Year
  Sex: Female

DRUGS (15)
  1. REMICADE [Suspect]
     Active Substance: INFLIXIMAB
     Indication: Product used for unknown indication
     Dosage: LAST ADMINISTRATION DATE 2021
     Route: 065
     Dates: start: 20210305
  2. CYCLOSPORINE [Suspect]
     Active Substance: CYCLOSPORINE
     Indication: Product used for unknown indication
     Route: 065
  3. PREDNISOLONE [Suspect]
     Active Substance: PREDNISOLONE
     Indication: Pancreatitis
     Route: 065
     Dates: start: 202101, end: 202102
  4. PREDNISOLONE [Suspect]
     Active Substance: PREDNISOLONE
     Dosage: DOSE INCREASED
     Route: 065
     Dates: start: 202102, end: 202103
  5. PREDNISOLONE [Suspect]
     Active Substance: PREDNISOLONE
     Route: 065
  6. PREDNISOLONE [Suspect]
     Active Substance: PREDNISOLONE
     Dosage: DOSE REDUCED
     Route: 065
     Dates: start: 202103
  7. PREDNISOLONE [Suspect]
     Active Substance: PREDNISOLONE
     Dosage: UNKNOWN
     Route: 065
     Dates: start: 202208
  8. AZATHIOPRINE [Suspect]
     Active Substance: AZATHIOPRINE
     Indication: Product used for unknown indication
     Route: 065
     Dates: start: 202106
  9. AZATHIOPRINE [Suspect]
     Active Substance: AZATHIOPRINE
     Route: 065
     Dates: start: 202102
  10. ADALIMUMAB [Suspect]
     Active Substance: ADALIMUMAB\ISOPROPYL ALCOHOL
     Indication: Product used for unknown indication
     Route: 058
     Dates: start: 202106
  11. TACROLIMUS [Concomitant]
     Active Substance: TACROLIMUS
     Indication: Product used for unknown indication
     Dosage: UNKNOWN
     Route: 065
     Dates: start: 202204
  12. VEDOLIZUMAB [Concomitant]
     Active Substance: VEDOLIZUMAB
     Indication: Product used for unknown indication
     Dates: start: 202203
  13. PIPERACILLIN SODIUM\TAZOBACTAM SODIUM [Concomitant]
     Active Substance: PIPERACILLIN SODIUM\TAZOBACTAM SODIUM
     Indication: Product used for unknown indication
     Dates: start: 202204
  14. MESALAMINE [Concomitant]
     Active Substance: MESALAMINE
     Indication: Product used for unknown indication
     Route: 065
     Dates: start: 202101
  15. SULFAMETHOXAZOLE\TRIMETHOPRIM [Concomitant]
     Active Substance: SULFAMETHOXAZOLE\TRIMETHOPRIM
     Indication: Product used for unknown indication
     Dosage: 2 X 400/80 MG

REACTIONS (28)
  - Colitis ulcerative [Recovered/Resolved]
  - Cerebral venous sinus thrombosis [Recovered/Resolved]
  - Folate deficiency [Unknown]
  - Vomiting [Unknown]
  - Drug hypersensitivity [Unknown]
  - Idiopathic intracranial hypertension [Unknown]
  - Pancreatitis [Unknown]
  - Cerebral venous sinus thrombosis [Unknown]
  - Vitamin D deficiency [Unknown]
  - Therapeutic product effect decreased [Unknown]
  - Drug intolerance [Unknown]
  - Cerebral venous sinus thrombosis [Recovered/Resolved]
  - Colitis ulcerative [Unknown]
  - Papilloedema [Recovered/Resolved]
  - Chills [Unknown]
  - Drug intolerance [Unknown]
  - Sigmoid sinus thrombosis [Recovering/Resolving]
  - Drug intolerance [Unknown]
  - Colitis ulcerative [Unknown]
  - Transverse sinus thrombosis [Recovering/Resolving]
  - Headache [Recovered/Resolved]
  - Anaemia [Unknown]
  - Papilloedema [Unknown]
  - Dizziness [Unknown]
  - Headache [Unknown]
  - Hypoalbuminaemia [Unknown]
  - Drug specific antibody present [Unknown]
  - Drug specific antibody present [Unknown]

NARRATIVE: CASE EVENT DATE: 20210101
